FAERS Safety Report 22225438 (Version 3)
Quarter: 2023Q2

REPORT INFORMATION
  Report Type: Spontaneous
  Country: US (occurrence: US)
  Receive Date: 20230418
  Receipt Date: 20230511
  Transmission Date: 20230722
  Serious: No
  Sender: FDA-Public Use
  Company Number: US-KARYOPHARM-2023KPT001049

PATIENT

DRUGS (14)
  1. XPOVIO [Suspect]
     Active Substance: SELINEXOR
     Indication: Diffuse large B-cell lymphoma
     Dosage: 60 MG, 2X/WEEK
     Route: 048
     Dates: start: 20230328, end: 20230419
  2. ACYCLOVIR [Concomitant]
     Active Substance: ACYCLOVIR
  3. ATIVAN [Concomitant]
     Active Substance: LORAZEPAM
  4. CYCLOBENZAPRINE [Concomitant]
     Active Substance: CYCLOBENZAPRINE
  5. ELIQUIS [Concomitant]
     Active Substance: APIXABAN
  6. GABAPENTIN [Concomitant]
     Active Substance: GABAPENTIN
  7. LEVOFLOXACIN [Concomitant]
     Active Substance: LEVOFLOXACIN
  8. MORPHINE SULFATE [Concomitant]
     Active Substance: MORPHINE SULFATE
  9. ONDANSETRON [Concomitant]
     Active Substance: ONDANSETRON
  10. OXYCODONE [Concomitant]
     Active Substance: OXYCODONE
  11. PREDNISONE [Concomitant]
     Active Substance: PREDNISONE
  12. PROCHLORPERAZINE [Concomitant]
     Active Substance: PROCHLORPERAZINE
  13. TRIAMCINOLONE [Concomitant]
     Active Substance: TRIAMCINOLONE
  14. VESICARE [Concomitant]
     Active Substance: SOLIFENACIN SUCCINATE

REACTIONS (11)
  - Insomnia [Unknown]
  - Hypoaesthesia [Unknown]
  - Pain [Unknown]
  - Somnolence [Unknown]
  - Diffuse large B-cell lymphoma refractory [Unknown]
  - Vomiting [Recovering/Resolving]
  - Nausea [Not Recovered/Not Resolved]
  - Fatigue [Unknown]
  - Abdominal pain upper [Unknown]
  - Weight decreased [Unknown]
  - Diarrhoea [Unknown]

NARRATIVE: CASE EVENT DATE: 20230101
